FAERS Safety Report 10867816 (Version 1)
Quarter: 2015Q1

REPORT INFORMATION
  Report Type: Spontaneous
  Country: US (occurrence: US)
  Receive Date: 20150225
  Receipt Date: 20150225
  Transmission Date: 20150721
  Serious: Yes (Hospitalization, Other)
  Sender: FDA-Public Use
  Company Number: US-ACTAVIS-2015-03664

PATIENT
  Age: 45 Year
  Sex: Female

DRUGS (6)
  1. RISPERIDONE. [Concomitant]
     Active Substance: RISPERIDONE
     Indication: BIPOLAR I DISORDER
     Dosage: 2 MG, QPM
     Route: 048
  2. LISINOPRIL. [Concomitant]
     Active Substance: LISINOPRIL
     Indication: HYPERTENSION
     Dosage: 25 MG, DAILY
     Route: 065
  3. LITHIUM CARBONATE (UNKNOWN) [Suspect]
     Active Substance: LITHIUM CARBONATE
     Indication: BIPOLAR I DISORDER
     Dosage: 1050 MG, TOTAL
     Route: 048
  4. LACTULOSE (UNKNOWN) [Suspect]
     Active Substance: LACTULOSE
     Indication: CONSTIPATION
     Dosage: 90 ML, DAILY(3 DOSES OF 30 ML)
     Route: 048
  5. LITHIUM CARBONATE (UNKNOWN) [Suspect]
     Active Substance: LITHIUM CARBONATE
     Dosage: 300 MG, BID
     Route: 048
  6. HYDROCHLOROTHIAZIDE. [Concomitant]
     Active Substance: HYDROCHLOROTHIAZIDE
     Indication: HYPERTENSION
     Dosage: 25 MG, DAILY
     Route: 065

REACTIONS (4)
  - Drug interaction [Recovered/Resolved]
  - Diarrhoea [Unknown]
  - Fatigue [Unknown]
  - Drug level above therapeutic [Recovered/Resolved]
